FAERS Safety Report 9319695 (Version 1)
Quarter: 2013Q2

REPORT INFORMATION
  Report Type: Spontaneous
  Country: US (occurrence: None)
  Receive Date: 20130529
  Receipt Date: 20130529
  Transmission Date: 20140414
  Serious: No
  Sender: FDA-Public Use
  Company Number: None

PATIENT
  Age: 51 Year
  Sex: Female
  Weight: 79.83 kg

DRUGS (2)
  1. HYDROCHLOROQUINE [Suspect]
     Route: 048
     Dates: start: 20130130, end: 20130221
  2. HYDROCHLOROQUINE [Suspect]
     Indication: VITAMIN D DEFICIENCY
     Route: 048
     Dates: start: 20130130, end: 20130221

REACTIONS (1)
  - Gingival pain [None]
